FAERS Safety Report 5811020-4 (Version None)
Quarter: 2008Q3

REPORT INFORMATION
  Report Type: 
  Country: None (occurrence: None)
  Receive Date: 20080710
  Receipt Date: 20080702
  Transmission Date: 20090109
  Serious: Yes (Other)
  Sender: FDA-Public Use
  Company Number: 2008SP013072

PATIENT
  Age: 74 Year
  Sex: Female

DRUGS (4)
  1. INTRON A [Suspect]
     Indication: DRUG USE FOR UNKNOWN INDICATION
     Dates: start: 20070618
  2. DICLOFENAC SODIUM [Concomitant]
  3. BEZAFIBRAT [Concomitant]
  4. ASPIRIN [Concomitant]

REACTIONS (1)
  - MALIGNANT MELANOMA [None]
